FAERS Safety Report 7967553-8 (Version None)
Quarter: 2011Q4

REPORT INFORMATION
  Report Type: 
  Country: None (occurrence: None)
  Receive Date: 20111207
  Receipt Date: 20111126
  Transmission Date: 20120403
  Serious: Yes (Death, Life-Threatening, Congenital Anomaly)
  Sender: FDA-Public Use
  Company Number: 2011S1000370

PATIENT
  Age: 1 Day
  Sex: Male
  Weight: 2.84 kg

DRUGS (4)
  1. INOMAX [Suspect]
     Indication: OXYGEN SATURATION DECREASED
     Dosage: 20 PPM, CONT, INH
     Route: 055
     Dates: start: 20111125, end: 20111126
  2. INOMAX [Suspect]
  3. DOPAMINE HCL [Concomitant]
  4. OXYGEN [Concomitant]

REACTIONS (8)
  - CARDIO-RESPIRATORY ARREST [None]
  - PULMONARY MALFORMATION [None]
  - CONGENITAL BLADDER ANOMALY [None]
  - DEATH NEONATAL [None]
  - MATERNAL DRUGS AFFECTING FOETUS [None]
  - DEXTROCARDIA [None]
  - WHITE BLOOD CELL COUNT INCREASED [None]
  - CONGENITAL CYSTIC KIDNEY DISEASE [None]
